FAERS Safety Report 15127017 (Version 4)
Quarter: 2025Q4

REPORT INFORMATION
  Report Type: Spontaneous
  Country: EU (occurrence: EU)
  Receive Date: 20180710
  Receipt Date: 20251029
  Transmission Date: 20260118
  Serious: Yes (Other)
  Sender: MYLAN
  Company Number: EU-MYLANLABS-2018M1051690

PATIENT
  Age: 38 Year
  Sex: Female

DRUGS (3)
  1. VALPROIC ACID [Interacting]
     Active Substance: VALPROIC ACID
     Indication: Bipolar disorder
     Dosage: 500 MILLIGRAM, QD
  2. QUETIAPINE [Suspect]
     Active Substance: QUETIAPINE
     Indication: Bipolar disorder
     Dosage: 600 MILLIGRAM, QD
  3. LITHIUM [Interacting]
     Active Substance: LITHIUM
     Indication: Bipolar disorder
     Dosage: UNK

REACTIONS (2)
  - Disorientation [Recovered/Resolved]
  - Drug interaction [Unknown]
